FAERS Safety Report 12750265 (Version 1)
Quarter: 2016Q3

REPORT INFORMATION
  Report Type: Spontaneous
  Country: MX (occurrence: MX)
  Receive Date: 20160916
  Receipt Date: 20160916
  Transmission Date: 20161109
  Serious: Yes (Hospitalization)
  Sender: FDA-Public Use
  Company Number: MX-ASTRAZENECA-2016SE95972

PATIENT
  Age: 84 Year
  Sex: Female
  Weight: 167 kg

DRUGS (1)
  1. FORXIGA [Suspect]
     Active Substance: DAPAGLIFLOZIN
     Indication: DIABETES MELLITUS
     Route: 048
     Dates: start: 201605

REACTIONS (5)
  - Syncope [Recovered/Resolved]
  - Upper limb fracture [Unknown]
  - Hypokalaemia [Recovered/Resolved]
  - Hyperkalaemia [Unknown]
  - Bradycardia [Unknown]

NARRATIVE: CASE EVENT DATE: 20160903
